FAERS Safety Report 18159101 (Version 3)
Quarter: 2022Q2

REPORT INFORMATION
  Report Type: Report from Study
  Country: PL (occurrence: PL)
  Receive Date: 20200817
  Receipt Date: 20220421
  Transmission Date: 20220721
  Serious: Yes (Life-Threatening, Other)
  Sender: FDA-Public Use
  Company Number: PL-MERCK HEALTHCARE KGAA-9179402

PATIENT
  Age: 50 Year
  Sex: Male
  Weight: 76 kg

DRUGS (12)
  1. CETUXIMAB [Suspect]
     Active Substance: CETUXIMAB
     Indication: Colorectal cancer metastatic
     Dosage: 500 MG/M2, EVERY 2 WEEKS
     Route: 042
     Dates: start: 20200227, end: 20200709
  2. CETUXIMAB [Suspect]
     Active Substance: CETUXIMAB
     Dosage: 500 MG/M2, EVERY 2 WEEKS
     Route: 042
     Dates: start: 20200810
  3. CETUXIMAB [Suspect]
     Active Substance: CETUXIMAB
     Dosage: 500 MG/M2, EVERY 2 WEEKS
     Route: 042
     Dates: start: 20200907
  4. LEUCOVORIN [Suspect]
     Active Substance: LEUCOVORIN
     Indication: Colorectal cancer metastatic
     Dosage: 178 MG, EVERY 2 WEEKS
     Route: 042
     Dates: start: 20200227, end: 20200709
  5. LEUCOVORIN [Suspect]
     Active Substance: LEUCOVORIN
     Dosage: 178 MG, OTHER, EVERY TWO WEEKS
     Route: 042
     Dates: start: 20200810
  6. LEUCOVORIN [Suspect]
     Active Substance: LEUCOVORIN
     Dosage: 178 MG, OTHER, EVERY TWO WEEKS
     Route: 042
     Dates: start: 20200902
  7. FLUOROURACIL [Suspect]
     Active Substance: FLUOROURACIL
     Indication: Colorectal cancer metastatic
     Dosage: 1780 MG, EVERY 2 WEEKS
     Route: 042
     Dates: start: 20200227, end: 20200709
  8. FLUOROURACIL [Suspect]
     Active Substance: FLUOROURACIL
     Dosage: 1780 MG, EVERY 2 WEEKS
     Route: 042
     Dates: start: 20200810
  9. FLUOROURACIL [Suspect]
     Active Substance: FLUOROURACIL
     Dosage: 1780 MG, EVERY 2 WEEKS
     Route: 042
     Dates: start: 20200907
  10. IRINOTECAN [Suspect]
     Active Substance: IRINOTECAN
     Indication: Colorectal cancer metastatic
     Dosage: 320 MG, EVERY 2 WEEKS
     Route: 042
     Dates: start: 20200227, end: 20200709
  11. IRINOTECAN [Suspect]
     Active Substance: IRINOTECAN
     Dosage: 320 MG, EVERY 2 WEEKS
     Route: 042
     Dates: start: 20200810
  12. IRINOTECAN [Suspect]
     Active Substance: IRINOTECAN
     Dosage: 320 MG, EVERY 2 WEEKS
     Route: 042
     Dates: start: 20200907

REACTIONS (2)
  - Skin toxicity [Not Recovered/Not Resolved]
  - Off label use [Unknown]

NARRATIVE: CASE EVENT DATE: 20200727
